FAERS Safety Report 8892408 (Version 1)
Quarter: 2012Q4

REPORT INFORMATION
  Report Type: 
  Country: US (occurrence: US)
  Receive Date: 20121107
  Receipt Date: 20121107
  Transmission Date: 20130627
  Serious: Yes (Other)
  Sender: FDA-Public Use
  Company Number: US-VIIV HEALTHCARE LIMITED-A1000171A

PATIENT

DRUGS (1)
  1. MARAVIROC [Suspect]

REACTIONS (1)
  - West Nile viral infection [Unknown]
